FAERS Safety Report 5112710-1 (Version None)
Quarter: 2006Q3

REPORT INFORMATION
  Report Type: 
  Country: None (occurrence: None)
  Receive Date: 20060922
  Receipt Date: 20060904
  Transmission Date: 20061208
  Serious: Yes (Hospitalization)
  Sender: FDA-Public Use
  Company Number: DE-GLAXOSMITHKLINE-B0437195A

PATIENT
  Sex: Female
  Weight: 100 kg

DRUGS (4)
  1. TOPOTECAN HYDROCHLORIDE [Suspect]
     Indication: OVARIAN CANCER
     Dosage: 2.48MG PER DAY
     Route: 042
     Dates: start: 20060814, end: 20060818
  2. BETALOC ZOK [Concomitant]
     Indication: HYPERTONIA
     Dosage: 95MG PER DAY
     Route: 048
  3. DELIX [Concomitant]
     Indication: HYPERTONIA
     Dosage: 30MG PER DAY
     Route: 048
  4. TORSEMIDE [Concomitant]
     Indication: HYPERTONIA
     Dosage: 2.5MG PER DAY

REACTIONS (1)
  - HAEMOGLOBIN ABNORMAL [None]
